FAERS Safety Report 9069549 (Version 2)
Quarter: 2013Q1

REPORT INFORMATION
  Report Type: Spontaneous
  Country: US (occurrence: US)
  Receive Date: 20130201
  Receipt Date: 20130215
  Transmission Date: 20140127
  Serious: Yes (Disabling, Other)
  Sender: FDA-Public Use
  Company Number: US-TEVA-383639USA

PATIENT
  Sex: Female
  Weight: 79.45 kg

DRUGS (2)
  1. COPAXONE [Suspect]
     Indication: RELAPSING-REMITTING MULTIPLE SCLEROSIS
  2. PREMARIN [Suspect]
     Indication: HYSTERECTOMY
     Dosage: FOR ABOUT 25 YEARS

REACTIONS (13)
  - Cervical myelopathy [Not Recovered/Not Resolved]
  - Cervical spinal stenosis [Not Recovered/Not Resolved]
  - Spinal disorder [Not Recovered/Not Resolved]
  - Fatigue [Not Recovered/Not Resolved]
  - Back pain [Not Recovered/Not Resolved]
  - Hypoaesthesia [Not Recovered/Not Resolved]
  - Arthralgia [Not Recovered/Not Resolved]
  - Gait disturbance [Not Recovered/Not Resolved]
  - Muscle atrophy [Not Recovered/Not Resolved]
  - Injection site pain [Unknown]
  - Mood swings [Unknown]
  - Incorrect dose administered [Unknown]
  - Arthropathy [Not Recovered/Not Resolved]
